FAERS Safety Report 23918848 (Version 2)
Quarter: 2024Q2

REPORT INFORMATION
  Report Type: Spontaneous
  Country: US (occurrence: US)
  Receive Date: 20240530
  Receipt Date: 20240610
  Transmission Date: 20240715
  Serious: Yes (Death, Other)
  Sender: FDA-Public Use
  Company Number: US-AUROBINDO-AUR-APL-2024-025508

PATIENT
  Age: 57 Year
  Sex: Female

DRUGS (1)
  1. CLOZAPINE [Suspect]
     Active Substance: CLOZAPINE
     Indication: Product used for unknown indication
     Dosage: UNK
     Route: 048

REACTIONS (1)
  - Death [Fatal]

NARRATIVE: CASE EVENT DATE: 20240516
